FAERS Safety Report 5446861-9 (Version None)
Quarter: 2007Q3

REPORT INFORMATION
  Report Type: 
  Country: None (occurrence: None)
  Receive Date: 20070802
  Receipt Date: 20070601
  Transmission Date: 20080115
  Serious: Yes (Other)
  Sender: FDA-Public Use
  Company Number: 2007046062

PATIENT
  Age: 49 Year
  Sex: Male
  Weight: 68.9 kg

DRUGS (1)
  1. IRINOTECAN HCL [Suspect]
     Indication: SMALL CELL LUNG CANCER STAGE UNSPECIFIED
     Dosage: 570 MG (570 MG, 21 DAY CYCLE)
     Dates: start: 20070525

REACTIONS (1)
  - DIARRHOEA [None]
